FAERS Safety Report 9419410 (Version 2)
Quarter: 2013Q4

REPORT INFORMATION
  Report Type: Spontaneous
  Country: GB (occurrence: GB)
  Receive Date: 20130725
  Receipt Date: 20131112
  Transmission Date: 20140711
  Serious: Yes (Hospitalization)
  Sender: FDA-Public Use
  Company Number: GB-TEVA-420148ISR

PATIENT
  Age: 63 Year
  Sex: Male
  Weight: 79.5 kg

DRUGS (8)
  1. NITROFURANTOIN [Suspect]
     Indication: CYSTITIS
     Dosage: 50 MILLIGRAM DAILY; AT NIGHT
     Dates: start: 201202, end: 201303
  2. LANSOPRAZOLE [Concomitant]
     Dates: start: 20130508, end: 20130605
  3. ATORVASTATIN [Concomitant]
  4. ASPIRIN [Concomitant]
  5. METFORMIN [Concomitant]
  6. PREDNISOLONE [Concomitant]
  7. ALENDRONIC ACID [Concomitant]
  8. ADCAL-D3 [Concomitant]

REACTIONS (2)
  - Pulmonary fibrosis [Not Recovered/Not Resolved]
  - Alveolitis allergic [Not Recovered/Not Resolved]
